FAERS Safety Report 8848882 (Version 1)
Quarter: 2012Q4

REPORT INFORMATION
  Report Type: Spontaneous
  Country: US (occurrence: None)
  Receive Date: 20121017
  Receipt Date: 20121017
  Transmission Date: 20130627
  Serious: No
  Sender: FDA-Public Use
  Company Number: None

PATIENT
  Age: 68 Year
  Sex: Male
  Weight: 79.38 kg

DRUGS (1)
  1. FINASTERIDE [Suspect]
     Dates: start: 20120720, end: 20121003

REACTIONS (5)
  - Breast enlargement [None]
  - Breast tenderness [None]
  - Nipple pain [None]
  - Breast pain [None]
  - Product substitution issue [None]
